FAERS Safety Report 17620881 (Version 4)
Quarter: 2020Q2

REPORT INFORMATION
  Report Type: Report from Study
  Country: None (occurrence: US)
  Receive Date: 20200403
  Receipt Date: 20200611
  Transmission Date: 20200713
  Serious: Yes (Hospitalization)
  Sender: FDA-Public Use
  Company Number: US-ABBVIE-20P-163-3343792-00

PATIENT
  Age: 61 Year
  Sex: Female

DRUGS (5)
  1. IMBRUVICA [Suspect]
     Active Substance: IBRUTINIB
     Indication: B-CELL SMALL LYMPHOCYTIC LYMPHOMA
     Route: 048
     Dates: start: 20200310, end: 202003
  2. IMBRUVICA [Suspect]
     Active Substance: IBRUTINIB
     Route: 048
     Dates: start: 202003
  3. IMBRUVICA [Suspect]
     Active Substance: IBRUTINIB
     Route: 048
  4. IMBRUVICA [Suspect]
     Active Substance: IBRUTINIB
     Route: 048
     Dates: start: 20200311, end: 20200415
  5. IMBRUVICA [Suspect]
     Active Substance: IBRUTINIB
     Route: 048
     Dates: start: 20200416

REACTIONS (10)
  - Haemoglobin abnormal [Recovered/Resolved]
  - Dehydration [Unknown]
  - Abdominal mass [Recovering/Resolving]
  - Blood immunoglobulin M abnormal [Unknown]
  - Nausea [Not Recovered/Not Resolved]
  - Body temperature increased [Unknown]
  - White blood cell count abnormal [Unknown]
  - White blood cell count abnormal [Recovered/Resolved]
  - Diarrhoea [Recovered/Resolved]
  - Haemoglobin abnormal [Unknown]

NARRATIVE: CASE EVENT DATE: 2020
